FAERS Safety Report 9302535 (Version 1)
Quarter: 2013Q2

REPORT INFORMATION
  Report Type: Spontaneous
  Country: US (occurrence: US)
  Receive Date: 20130522
  Receipt Date: 20130522
  Transmission Date: 20140414
  Serious: Yes (Other)
  Sender: FDA-Public Use
  Company Number: US-BAYER-2013-063139

PATIENT
  Age: 54 Year
  Sex: Male

DRUGS (1)
  1. BETASERON [Suspect]
     Indication: MULTIPLE SCLEROSIS
     Dosage: 0.5 MG (2X0.3MG)
     Route: 058
     Dates: start: 200801

REACTIONS (3)
  - Myocardial infarction [None]
  - Multiple sclerosis relapse [None]
  - Toothache [None]
